FAERS Safety Report 5157463-6 (Version None)
Quarter: 2006Q4

REPORT INFORMATION
  Report Type: 
  Country: None (occurrence: None)
  Receive Date: 20061127
  Receipt Date: 20061115
  Transmission Date: 20070319
  Serious: Yes (Hospitalization, Other)
  Sender: FDA-Public Use
  Company Number: US-AVENTIS-200619419US

PATIENT
  Sex: Female
  Weight: 110.9 kg

DRUGS (4)
  1. KETEK [Suspect]
     Indication: PNEUMONIA
     Dates: start: 20060101
  2. ANTIBIOTICS [Concomitant]
     Dosage: DOSE: UNK
  3. ZITHROMAX [Concomitant]
     Dosage: DOSE: UNK
     Dates: start: 20060101
  4. PREMARIN [Concomitant]
     Dosage: DOSE: 1/2 TAB OF 1.255

REACTIONS (16)
  - ALANINE AMINOTRANSFERASE INCREASED [None]
  - ASPARTATE AMINOTRANSFERASE INCREASED [None]
  - ASTHENIA [None]
  - BILIRUBIN CONJUGATED INCREASED [None]
  - BLOOD BILIRUBIN INCREASED [None]
  - CHROMATURIA [None]
  - HEPATITIS [None]
  - HYPERSENSITIVITY [None]
  - JAUNDICE [None]
  - NAUSEA [None]
  - PAIN [None]
  - PRURITUS [None]
  - PYREXIA [None]
  - RASH [None]
  - VERTIGO [None]
  - WEIGHT FLUCTUATION [None]
